FAERS Safety Report 5004953-2 (Version None)
Quarter: 2006Q1

REPORT INFORMATION
  Report Type: 
  Country: None (occurrence: None)
  Receive Date: 20060321
  Receipt Date: 20060104
  Transmission Date: 20060701
  Serious: No
  Sender: FDA-Public Use
  Company Number: YPA20060022

PATIENT
  Sex: Female

DRUGS (2)
  1. VESICARE [Suspect]
     Indication: URINARY INCONTINENCE
     Dosage: 10 MG, ORAL
     Route: 048
     Dates: start: 20051201
  2. LASIX [Concomitant]

REACTIONS (1)
  - OEDEMA PERIPHERAL [None]
